FAERS Safety Report 8971258 (Version 1)
Quarter: 2012Q4

REPORT INFORMATION
  Report Type: 
  Country: JP (occurrence: JP)
  Receive Date: 20121217
  Receipt Date: 20121217
  Transmission Date: 20130627
  Serious: Yes (Hospitalization)
  Sender: FDA-Public Use
  Company Number: JP-GLAXOSMITHKLINE-B0852507A

PATIENT
  Age: 77 Year
  Sex: Male

DRUGS (3)
  1. ZANTAC [Suspect]
     Indication: PRODUCT USED FOR UNKNOWN INDICATION
     Dosage: 50MG Per day
     Route: 042
     Dates: start: 201211, end: 201211
  2. PACLITAXEL [Concomitant]
     Route: 042
  3. SEISHOKU [Concomitant]
     Dosage: 20ML Per day
     Route: 042
     Dates: start: 201211, end: 201211

REACTIONS (4)
  - Anaphylactic reaction [Recovered/Resolved]
  - Depressed level of consciousness [Recovered/Resolved]
  - Nausea [Recovered/Resolved]
  - Incontinence [Recovered/Resolved]
